FAERS Safety Report 25338862 (Version 1)
Quarter: 2025Q2

REPORT INFORMATION
  Report Type: Spontaneous
  Country: US (occurrence: US)
  Receive Date: 20250520
  Receipt Date: 20250520
  Transmission Date: 20250716
  Serious: Yes (Hospitalization)
  Sender: ORGANON
  Company Number: US-MLMSERVICE-20250514-PI253871-00226-1

PATIENT
  Age: 17 Year
  Sex: Male

DRUGS (9)
  1. REMERON [Suspect]
     Active Substance: MIRTAZAPINE
     Indication: Depression
     Dosage: 7.5 MILLIGRAM, QD (7.5 MG AT 20:11 (DAY 1), AT 20:11 (DAY 2), 19:48 (DAY 3))
  2. REMERON [Suspect]
     Active Substance: MIRTAZAPINE
     Dosage: 7.5 MILLIGRAM, QD (15 MG AT 20:26 (DAY 7), AT 20:17 (DAY 8))
  3. REMERON [Suspect]
     Active Substance: MIRTAZAPINE
     Dosage: 30 MILLIGRAM, QD (30 MG AT 20:14 (DAY 9), AT 20:30 (DAY 10))
  4. REMERON [Suspect]
     Active Substance: MIRTAZAPINE
     Dosage: 15 MILLIGRAM, QD (45 MG AT 20:54 (DAY 11), AT 20:36 (DAY 12), 18:57 (DAY 13))
  5. METHYLPHENIDATE [Concomitant]
     Active Substance: METHYLPHENIDATE
  6. AMANTADINE [Concomitant]
     Active Substance: AMANTADINE
     Dosage: 200 MILLIGRAM, BID
  7. ZOLPIDEM [Concomitant]
     Active Substance: ZOLPIDEM TARTRATE
     Dosage: 25 MILLIGRAM PER DAY (QD) IN DIVIDED DOSING
  8. LACOSAMIDE [Concomitant]
     Active Substance: LACOSAMIDE
     Indication: Staring
     Dosage: 50 MILLIGRAM, BID
  9. MELATONIN [Concomitant]
     Active Substance: MELATONIN
     Dosage: 3 MILLIGRAM, QHS

REACTIONS (3)
  - Hyperkinesia [Recovering/Resolving]
  - Underdose [Unknown]
  - Product prescribing issue [Unknown]
